FAERS Safety Report 25473760 (Version 2)
Quarter: 2025Q3

REPORT INFORMATION
  Report Type: Report from Study
  Country: US (occurrence: US)
  Receive Date: 20250624
  Receipt Date: 20250702
  Transmission Date: 20251020
  Serious: Yes (Other)
  Sender: MALLINCKRODT
  Company Number: US-MALLINCKRODT-MNK202503644

PATIENT
  Age: 72 Year
  Sex: Female

DRUGS (3)
  1. CORTICOTROPIN [Suspect]
     Active Substance: CORTICOTROPIN
     Indication: Rheumatoid arthritis
     Route: 058
     Dates: start: 20250530, end: 20250619
  2. PROLIA [Concomitant]
     Active Substance: DENOSUMAB
  3. SIMPONI [Concomitant]
     Active Substance: GOLIMUMAB

REACTIONS (11)
  - Blood pressure increased [Unknown]
  - Pain [Unknown]
  - Flushing [Unknown]
  - Headache [Unknown]
  - Fatigue [Unknown]
  - Weight increased [Unknown]
  - Peripheral swelling [Unknown]
  - Injection site pain [Unknown]
  - Injection site discharge [Unknown]
  - Contraindicated product administered [Unknown]
  - Underdose [Unknown]

NARRATIVE: CASE EVENT DATE: 20250101
